FAERS Safety Report 9011664 (Version 2)
Quarter: 2013Q1

REPORT INFORMATION
  Report Type: Spontaneous
  Country: US (occurrence: US)
  Receive Date: 20130108
  Receipt Date: 20130226
  Transmission Date: 20140127
  Serious: No
  Sender: FDA-Public Use
  Company Number: US-ASTRAZENECA-2013SE00329

PATIENT
  Age: 67 Year
  Sex: Male
  Weight: 78 kg

DRUGS (5)
  1. CRESTOR [Suspect]
     Route: 048
  2. CRESTOR [Suspect]
     Route: 048
  3. CRESTOR [Suspect]
     Route: 048
  4. BETALOC [Concomitant]
  5. PLAVIX [Concomitant]

REACTIONS (3)
  - Peripheral coldness [Not Recovered/Not Resolved]
  - Pain [Recovered/Resolved]
  - Muscle spasms [Recovered/Resolved]
